FAERS Safety Report 6932140-7 (Version None)
Quarter: 2010Q3

REPORT INFORMATION
  Report Type: 
  Country: None (occurrence: None)
  Receive Date: 20100819
  Receipt Date: 20100813
  Transmission Date: 20110219
  Serious: Yes (Hospitalization, Disabling)
  Sender: FDA-Public Use
  Company Number: A0876571A

PATIENT
  Age: 92 Year
  Sex: Female

DRUGS (1)
  1. AVANDIA [Suspect]
     Route: 048
     Dates: start: 20050210, end: 20080513

REACTIONS (5)
  - CARDIAC FAILURE CONGESTIVE [None]
  - DEFORMITY [None]
  - MOBILITY DECREASED [None]
  - PHYSICAL DISABILITY [None]
  - TRAUMATIC LUNG INJURY [None]
